FAERS Safety Report 17377392 (Version 15)
Quarter: 2023Q2

REPORT INFORMATION
  Report Type: Spontaneous
  Country: US (occurrence: US)
  Receive Date: 20200206
  Receipt Date: 20230412
  Transmission Date: 20230721
  Serious: Yes (Hospitalization, Other)
  Sender: FDA-Public Use
  Company Number: US-PFIZER INC-2020050680

PATIENT
  Age: 75 Year
  Sex: Female
  Weight: 88.45 kg

DRUGS (3)
  1. XELJANZ [Suspect]
     Active Substance: TOFACITINIB CITRATE
     Indication: Arthritis
     Dosage: 5 MG
  2. XELJANZ [Suspect]
     Active Substance: TOFACITINIB CITRATE
     Indication: Autonomic neuropathy
     Dosage: 10 MG
  3. XELJANZ [Suspect]
     Active Substance: TOFACITINIB CITRATE
     Indication: Rheumatoid arthritis
     Dosage: 5 MG, 2X/DAY (TWICE A DAY)

REACTIONS (9)
  - Movement disorder [Unknown]
  - Mobility decreased [Unknown]
  - Feeling abnormal [Unknown]
  - Arthritis [Unknown]
  - Pain [Unknown]
  - Confusional state [Unknown]
  - Malaise [Unknown]
  - Hypertension [Unknown]
  - Memory impairment [Unknown]
